FAERS Safety Report 13649886 (Version 1)
Quarter: 2017Q2

REPORT INFORMATION
  Report Type: Spontaneous
  Country: US (occurrence: US)
  Receive Date: 20170613
  Receipt Date: 20170613
  Transmission Date: 20170830
  Serious: Yes (Other)
  Sender: FDA-Public Use
  Company Number: None

PATIENT
  Age: 58 Year
  Sex: Female
  Weight: 80.8 kg

DRUGS (8)
  1. XARELTO [Suspect]
     Active Substance: RIVAROXABAN
     Indication: CEREBROVASCULAR ACCIDENT
     Route: 048
     Dates: start: 20170104, end: 20170423
  2. LEXAPRO [Concomitant]
     Active Substance: ESCITALOPRAM OXALATE
  3. ALPRAZOLAM. [Concomitant]
     Active Substance: ALPRAZOLAM
  4. OMEPRAZOLE. [Concomitant]
     Active Substance: OMEPRAZOLE
  5. MELATONIN [Concomitant]
     Active Substance: MELATONIN
  6. XARELTO [Suspect]
     Active Substance: RIVAROXABAN
     Indication: ATRIAL SEPTAL DEFECT
     Route: 048
     Dates: start: 20170104, end: 20170423
  7. SIMVASTATIN. [Concomitant]
     Active Substance: SIMVASTATIN
  8. XARELTO [Suspect]
     Active Substance: RIVAROXABAN
     Indication: PULMONARY EMBOLISM
     Route: 048
     Dates: start: 20170104, end: 20170423

REACTIONS (2)
  - Back pain [None]
  - Muscle spasms [None]

NARRATIVE: CASE EVENT DATE: 20170423
